FAERS Safety Report 8103236-1 (Version None)
Quarter: 2012Q1

REPORT INFORMATION
  Report Type: 
  Country: None (occurrence: None)
  Receive Date: 20120201
  Receipt Date: 20111213
  Transmission Date: 20120608
  Serious: Yes (Hospitalization, Other)
  Sender: FDA-Public Use
  Company Number: US-RANBAXY-2011RR-51155

PATIENT
  Sex: Male

DRUGS (6)
  1. HYDROCORTISONE [Suspect]
     Dosage: 20 MG, UNK
     Route: 048
     Dates: start: 20090316, end: 20091214
  2. HYDROCORTISONE [Suspect]
     Indication: ADRENAL DISORDER
     Dosage: 20 MG, UNK
     Route: 048
     Dates: start: 20070721, end: 20071022
  3. HYDROCORTISONE [Suspect]
     Dosage: 20 MG, UNK
     Route: 048
     Dates: start: 20100106, end: 20100315
  4. HYDROCORTISONE [Suspect]
     Dosage: 20 MG, UNK
     Route: 048
     Dates: start: 20080813, end: 20081213
  5. HYDROCORTISONE [Suspect]
     Dosage: 20 MG, UNK
     Route: 048
     Dates: start: 20071205
  6. LEVAQUIN [Suspect]
     Indication: PNEUMONIA
     Dosage: 500 MG, QD
     Route: 048
     Dates: start: 20070912

REACTIONS (2)
  - TENDON RUPTURE [None]
  - TENDON DISORDER [None]
